FAERS Safety Report 7177533-0 (Version None)
Quarter: 2010Q4

REPORT INFORMATION
  Report Type: 
  Country: None (occurrence: None)
  Receive Date: 20101220
  Receipt Date: 20090715
  Transmission Date: 20110411
  Serious: Yes (Hospitalization)
  Sender: FDA-Public Use
  Company Number: CA-SANOFI-AVENTIS-200915252GDDC

PATIENT
  Age: 59 Year
  Sex: Male
  Weight: 61.3 kg

DRUGS (18)
  1. AFLIBERCEPT [Suspect]
     Dosage: DOSE UNIT: 6 MG/KG
     Route: 042
     Dates: start: 20090424, end: 20090424
  2. DOCETAXEL [Suspect]
     Dosage: DOSE UNIT: 75 MG/M**2
     Route: 042
     Dates: start: 20090424, end: 20090424
  3. LORAZEPAM [Concomitant]
     Dates: start: 20080801
  4. CORTICOSTEROIDS [Concomitant]
  5. HYDROCODONE [Concomitant]
     Dates: start: 20080901
  6. AMLODIPINE BESYLATE [Concomitant]
     Dates: start: 20080901
  7. ESOMEPRAZOLE [Concomitant]
     Dates: start: 20080901
  8. IBUPROFEN [Concomitant]
     Dates: start: 20081101
  9. SENOKOT /UNK/ [Concomitant]
     Dates: start: 20081101
  10. DOCUSATE SODIUM [Concomitant]
     Dates: start: 20081101
  11. BENADRYL [Concomitant]
     Dates: start: 20081101
  12. FLUCONAZOLE [Concomitant]
     Dates: start: 20090304, end: 20090311
  13. PREDNISONE [Concomitant]
     Dates: start: 20090327
  14. BAG BALM [Concomitant]
     Dates: start: 20090304
  15. MAXERAN [Concomitant]
     Dates: start: 20090304
  16. HYCODAN /CAN/ [Concomitant]
     Dates: start: 20090304
  17. STEMETIL ^SPECIA^ [Concomitant]
     Dates: start: 20090325
  18. CIPROFLOXACIN [Concomitant]
     Dates: start: 20090415, end: 20090424

REACTIONS (2)
  - ADENOCARCINOMA [None]
  - PNEUMONIA NECROTISING [None]
